FAERS Safety Report 15494380 (Version 4)
Quarter: 2018Q4

REPORT INFORMATION
  Report Type: Spontaneous
  Country: US (occurrence: US)
  Receive Date: 20181012
  Receipt Date: 20181121
  Transmission Date: 20190205
  Serious: Yes (Other)
  Sender: FDA-Public Use
  Company Number: US-SA-2018SA280094

PATIENT
  Age: 71 Year
  Sex: Female

DRUGS (1)
  1. KEVZARA [Suspect]
     Active Substance: SARILUMAB
     Indication: RHEUMATOID ARTHRITIS
     Dosage: 150 MG, QOW
     Route: 058
     Dates: start: 201805

REACTIONS (6)
  - Rheumatoid arthritis [Unknown]
  - Urticaria [Unknown]
  - Blood test abnormal [Unknown]
  - Neutropenia [Unknown]
  - Unevaluable event [Unknown]
  - Body temperature increased [Unknown]

NARRATIVE: CASE EVENT DATE: 2018
